FAERS Safety Report 5077079-X (Version None)
Quarter: 2006Q3

REPORT INFORMATION
  Report Type: 
  Country: None (occurrence: None)
  Receive Date: 20060810
  Receipt Date: 20050110
  Transmission Date: 20061208
  Serious: No
  Sender: FDA-Public Use
  Company Number: US-GLAXOSMITHKLINE-A0540317A

PATIENT
  Sex: Female

DRUGS (4)
  1. PAXIL [Suspect]
     Indication: DRUG USE FOR UNKNOWN INDICATION
     Dosage: 20MG PER DAY
     Route: 048
  2. IBUPROFEN [Suspect]
  3. STEROIDS [Concomitant]
     Dosage: 4000MG UNKNOWN
     Route: 042
  4. STEROIDS [Concomitant]
     Route: 048
     Dates: start: 20040301

REACTIONS (7)
  - ANXIETY [None]
  - COLD SWEAT [None]
  - EARLY MORNING AWAKENING [None]
  - FEELING ABNORMAL [None]
  - INSOMNIA [None]
  - MALAISE [None]
  - TREMOR [None]
